FAERS Safety Report 8114972-5 (Version None)
Quarter: 2012Q1

REPORT INFORMATION
  Report Type: 
  Country: None (occurrence: None)
  Receive Date: 20120131
  Receipt Date: 20120109
  Transmission Date: 20120608
  Serious: Yes (Hospitalization)
  Sender: FDA-Public Use
  Company Number: 0224715

PATIENT
  Age: 38 Year
  Sex: Male

DRUGS (1)
  1. TACHOSIL [Suspect]
     Indication: SURGERY
     Dates: start: 20090801

REACTIONS (2)
  - ABDOMINAL INFECTION [None]
  - LOCALISED INTRAABDOMINAL FLUID COLLECTION [None]
